FAERS Safety Report 4685841-8 (Version None)
Quarter: 2005Q2

REPORT INFORMATION
  Report Type: 
  Country: None (occurrence: None)
  Receive Date: 20050607
  Receipt Date: 20050607
  Transmission Date: 20051028
  Serious: Yes (Other)
  Sender: FDA-Public Use
  Company Number: None

PATIENT
  Age: 64 Year
  Sex: Male
  Weight: 86.1834 kg

DRUGS (3)
  1. CIPRO [Suspect]
     Indication: PROSTATITIS
     Dosage: 500MG - 2X PER DAY
     Dates: start: 20050411, end: 20050421
  2. DOXICYCLINE [Concomitant]
  3. MEDRAL DOSE PACK STEROID [Concomitant]

REACTIONS (4)
  - ARTHRITIS [None]
  - JOINT STIFFNESS [None]
  - JOINT SWELLING [None]
  - PAIN [None]
